FAERS Safety Report 10901125 (Version 3)
Quarter: 2015Q2

REPORT INFORMATION
  Report Type: Spontaneous
  Country: JP (occurrence: JP)
  Receive Date: 20150310
  Receipt Date: 20150625
  Transmission Date: 20150821
  Serious: Yes (Life-Threatening, Other)
  Sender: FDA-Public Use
  Company Number: JP-ROCHE-1549911

PATIENT
  Age: 51 Year
  Sex: Female
  Weight: 43 kg

DRUGS (11)
  1. TAXOL [Suspect]
     Active Substance: PACLITAXEL
     Indication: BREAST CANCER
     Dosage: 11 TIMES
     Route: 041
     Dates: start: 2014, end: 20140924
  2. HERCEPTIN [Suspect]
     Active Substance: TRASTUZUMAB
     Indication: BREAST CANCER
     Route: 041
     Dates: start: 20140703, end: 20140703
  3. PERJETA [Suspect]
     Active Substance: PERTUZUMAB
     Indication: BREAST CANCER
     Dosage: STRENGTH: 420MG/14ML
     Route: 041
     Dates: start: 20140703, end: 20140703
  4. HERCEPTIN [Suspect]
     Active Substance: TRASTUZUMAB
     Indication: BREAST CANCER
     Dosage: SEVEN TIMES
     Route: 041
     Dates: start: 2014, end: 20141224
  5. TAKEPRON [Concomitant]
     Active Substance: LANSOPRAZOLE
     Indication: GASTRIC ULCER
     Route: 048
     Dates: start: 20150102, end: 20150222
  6. KADCYLA [Suspect]
     Active Substance: ADO-TRASTUZUMAB EMTANSINE
     Indication: BREAST CANCER
     Dosage: LAST DOSE ON 28/JAN/2015.
     Route: 041
     Dates: start: 20150105, end: 20150128
  7. CARBOCISTEINE [Concomitant]
     Active Substance: CARBOCYSTEINE
     Indication: COUGH
     Route: 048
     Dates: start: 20150102, end: 20150222
  8. BETAMETHASONE [Concomitant]
     Active Substance: BETAMETHASONE
     Indication: BREAST CANCER
     Route: 048
     Dates: start: 20150108, end: 20150222
  9. PERJETA [Suspect]
     Active Substance: PERTUZUMAB
     Indication: BREAST CANCER
     Dosage: SEVEN TIMES
     Route: 041
     Dates: start: 2014, end: 20141224
  10. TAXOL [Suspect]
     Active Substance: PACLITAXEL
     Indication: BREAST CANCER
     Route: 041
     Dates: start: 20140703, end: 20140703
  11. CALONAL [Concomitant]
     Active Substance: ACETAMINOPHEN
     Indication: PAIN
     Route: 048
     Dates: start: 20141229, end: 20141229

REACTIONS (6)
  - Cardiac failure [Recovering/Resolving]
  - Alopecia [Unknown]
  - Hepatic failure [Recovered/Resolved]
  - Cardiomyopathy [Recovered/Resolved]
  - Lymphangiosis carcinomatosa [Unknown]
  - White blood cell count decreased [Unknown]

NARRATIVE: CASE EVENT DATE: 2014
